FAERS Safety Report 4907035-0 (Version None)
Quarter: 2006Q1

REPORT INFORMATION
  Report Type: 
  Country: None (occurrence: None)
  Receive Date: 20060206
  Receipt Date: 20060121
  Transmission Date: 20060701
  Serious: Yes (Hospitalization)
  Sender: FDA-Public Use
  Company Number: GXKR2006US00604

PATIENT
  Age: 13 Year
  Sex: Male

DRUGS (7)
  1. DEXAMETHASONE [Suspect]
     Indication: ACUTE LYMPHOCYTIC LEUKAEMIA RECURRENT
     Dosage: 10 MG/M2,
  2. DAUNORUBICIN HCL [Concomitant]
  3. VINCRISTINE [Concomitant]
  4. HYDROCORTISONE [Concomitant]
  5. CYTARABINE [Concomitant]
  6. METHOTREXATE [Concomitant]
  7. RISPERIDONE [Concomitant]

REACTIONS (6)
  - FEBRILE NEUTROPENIA [None]
  - INSOMNIA [None]
  - INTENTIONAL SELF-INJURY [None]
  - MOOD ALTERED [None]
  - OBSESSIVE-COMPULSIVE DISORDER [None]
  - STEROID WITHDRAWAL SYNDROME [None]
